FAERS Safety Report 7998167-1 (Version None)
Quarter: 2011Q4

REPORT INFORMATION
  Report Type: 
  Country: None (occurrence: None)
  Receive Date: 20111221
  Receipt Date: 20110318
  Transmission Date: 20120403
  Serious: No
  Sender: FDA-Public Use
  Company Number: US-GLAXOSMITHKLINE-A0919005A

PATIENT
  Age: 69 Year
  Sex: Male

DRUGS (1)
  1. LOVAZA [Suspect]
     Indication: BLOOD TRIGLYCERIDES INCREASED
     Dosage: 2CAP PER DAY
     Route: 048
     Dates: end: 20110208

REACTIONS (5)
  - LIP SWELLING [None]
  - THROAT TIGHTNESS [None]
  - SWOLLEN TONGUE [None]
  - RASH [None]
  - SKIN DISORDER [None]
